FAERS Safety Report 22323869 (Version 4)
Quarter: 2023Q4

REPORT INFORMATION
  Report Type: Other
  Country: CA (occurrence: None)
  Receive Date: 20230516
  Receipt Date: 20231218
  Transmission Date: 20240110
  Serious: No
  Sender: FDA-Public Use
  Company Number: CA-ROCHE-3349136

PATIENT
  Age: 63 Year
  Sex: Male

DRUGS (2)
  1. OCREVUS [Suspect]
     Active Substance: OCRELIZUMAB
     Indication: Relapsing-remitting multiple sclerosis
     Dosage: 300 MG AT DAY 0 AND 14, THEN 600 MG EVERY 6 MONTHS, CONCENTRATE FOR INTRAVENOUS INFUSION
     Route: 042
     Dates: start: 20211019
  2. NAPROXEN [Concomitant]
     Active Substance: NAPROXEN

REACTIONS (4)
  - Memory impairment [Unknown]
  - COVID-19 [Recovered/Resolved]
  - Catheter site haemorrhage [Unknown]
  - Strabismus [Recovered/Resolved]

NARRATIVE: CASE EVENT DATE: 20220101
